FAERS Safety Report 5441617-5 (Version None)
Quarter: 2007Q3

REPORT INFORMATION
  Report Type: 
  Country: None (occurrence: None)
  Receive Date: 20070829
  Receipt Date: 20070816
  Transmission Date: 20080115
  Serious: Yes (Hospitalization)
  Sender: FDA-Public Use
  Company Number: 2005P1000639

PATIENT
  Age: 61 Year
  Sex: Female
  Weight: 85 kg

DRUGS (9)
  1. RETEPLASE (RETEPLASE) [Suspect]
     Indication: ACUTE MYOCARDIAL INFARCTION
     Dosage: 5 IU; BID; IV
     Route: 042
     Dates: start: 20050919, end: 20050919
  2. ABCIXIMAB (ABCIXIMAB) [Suspect]
     Indication: ACUTE MYOCARDIAL INFARCTION
     Dosage: 11 MG; X1; IV, 204 MG; X1; IV
     Route: 042
     Dates: start: 20050919, end: 20050919
  3. ABCIXIMAB (ABCIXIMAB) [Suspect]
     Indication: ACUTE MYOCARDIAL INFARCTION
     Dosage: 11 MG; X1; IV, 204 MG; X1; IV
     Route: 042
     Dates: start: 20050919, end: 20050919
  4. PLACEBO (PLACEBO) [Suspect]
     Indication: ACUTE MYOCARDIAL INFARCTION
     Dosage: 0.25 MG;KG; X1; IV
     Route: 042
     Dates: start: 20050919, end: 20050919
  5. ASPIRIN [Concomitant]
  6. CLOPIDOGREL [Concomitant]
  7. METOPROLOL SUCCINATE [Concomitant]
  8. SIMVASTATIN [Concomitant]
  9. PERINDOPRIL ERBUMINE [Concomitant]

REACTIONS (2)
  - BREAST PAIN [None]
  - MYALGIA [None]
